FAERS Safety Report 9067660 (Version 1)
Quarter: 2013Q1

REPORT INFORMATION
  Report Type: Spontaneous
  Country: US (occurrence: US)
  Receive Date: 20130128
  Receipt Date: 20130128
  Transmission Date: 20140127
  Serious: Yes (Other)
  Sender: FDA-Public Use
  Company Number: US-PFIZER INC-2013034970

PATIENT
  Age: 49 Year
  Sex: Female
  Weight: 80.73 kg

DRUGS (4)
  1. EFFEXOR [Suspect]
     Indication: DEPRESSION
     Dosage: 150MG IN THE MORNING AND 112.5MG (MENTIONED AS 75MG PLUS 37.5 MG) IN THE EVENING
  2. EFFEXOR [Suspect]
     Indication: ANXIETY
  3. LISINOPRIL-HYDROCHLOROTHIAZIDE [Concomitant]
     Indication: HYPERTENSION
     Dosage: LISINOPRIL 10 MG/HYDROCHLOROTHIAZIDE 12.5 MG, 2X/DAY
  4. ESTRADIOL [Concomitant]
     Indication: HYSTERECTOMY
     Dosage: 1 MG, UNK

REACTIONS (6)
  - Disorientation [Recovered/Resolved]
  - Sensory disturbance [Recovered/Resolved]
  - Feeling abnormal [Recovered/Resolved]
  - Nausea [Recovered/Resolved]
  - Headache [Recovered/Resolved]
  - Pain in extremity [Recovered/Resolved]
